FAERS Safety Report 9161190 (Version 15)
Quarter: 2015Q3

REPORT INFORMATION
  Report Type: Report from Study
  Country: FR (occurrence: FR)
  Receive Date: 20130313
  Receipt Date: 20150730
  Transmission Date: 20151125
  Serious: Yes (Death, Other)
  Sender: FDA-Public Use
  Company Number: FR-009507513-1303FRA003611

PATIENT

DRUGS (5)
  1. PEGINTERFERON ALFA-2A [Suspect]
     Active Substance: PEGINTERFERON ALFA-2A
     Indication: HEPATITIS C
     Dosage: UNK
  2. TELAPREVIR [Suspect]
     Active Substance: TELAPREVIR
     Indication: HEPATITIS C
  3. VIRAFERONPEG [Suspect]
     Active Substance: PEGINTERFERON ALFA-2B
     Indication: HEPATITIS C
     Dosage: BOCEPREVIR-BASED THERAPY: (1.5 UG/KG BODY WEIGHT/WEEK)
  4. VICTRELIS [Suspect]
     Active Substance: BOCEPREVIR
     Indication: HEPATITIS C
  5. REBETOL [Suspect]
     Active Substance: RIBAVIRIN
     Indication: HEPATITIS C
     Dosage: TELAPREVIR BASED THERAPY: (1,000 OR 1,200MG/DAY DEPENDING ON BODY WEIGHT
     Route: 048

REACTIONS (20)
  - Ascites [Unknown]
  - Bleeding varicose vein [Unknown]
  - Transfusion [Unknown]
  - Infection [Unknown]
  - Sepsis [Fatal]
  - Endocarditis [Fatal]
  - Hepatic failure [Fatal]
  - Neutropenia [Unknown]
  - Pyelonephritis acute [Unknown]
  - Encephalopathy [Unknown]
  - Skin infection [Unknown]
  - Asthenia [Unknown]
  - Pneumonia [Fatal]
  - Diarrhoea infectious [Unknown]
  - Lung infection [Unknown]
  - Food poisoning [Unknown]
  - Anaemia [Unknown]
  - Thrombocytopenia [Unknown]
  - Cholecystitis acute [Unknown]
  - Rash [Unknown]
